FAERS Safety Report 8470040 (Version 8)
Quarter: 2012Q4

REPORT INFORMATION
  Report Type: 
  Country: US (occurrence: US)
  Receive Date: 20120321
  Receipt Date: 20120911
  Transmission Date: 20130627
  Serious: Yes (Hospitalization, Disabling, Other)
  Sender: FDA-Public Use
  Company Number: US-009507513-1203USA02318

PATIENT

DRUGS (7)
  1. FOSAMAX [Suspect]
     Indication: OSTEOPENIA
     Dosage: 10 mg, qd
     Route: 048
     Dates: start: 19961125
  2. FOSAMAX [Suspect]
     Indication: OSTEOPOROSIS
     Dosage: 70 mg, QW
     Route: 048
     Dates: start: 20020816, end: 20090505
  3. FOSAMAX [Suspect]
     Route: 048
     Dates: end: 2008
  4. CALCIUM (UNSPECIFIED) [Concomitant]
     Indication: OSTEOPOROSIS
     Dosage: 1500 mg, qd
     Dates: start: 1992
  5. HORMONES (UNSPECIFIED) [Concomitant]
     Dates: start: 198506, end: 200512
  6. INSULIN [Concomitant]
     Indication: TYPE 1 DIABETES MELLITUS
     Dosage: 23-25 IU, qd
     Dates: start: 1962
  7. VITAMIN D (UNSPECIFIED) [Concomitant]
     Indication: OSTEOPOROSIS
     Dosage: 800 IU, qd

REACTIONS (73)
  - Malignant melanoma [Unknown]
  - Urinary tract infection [Unknown]
  - Renal failure acute [Unknown]
  - Transfusion [Unknown]
  - Cardiac disorder [Unknown]
  - Open reduction of fracture [Unknown]
  - Carpal tunnel decompression [Unknown]
  - Fall [Unknown]
  - Dyslipidaemia [Unknown]
  - Renal failure chronic [Not Recovered/Not Resolved]
  - Femur fracture [Recovering/Resolving]
  - Vitamin D deficiency [Unknown]
  - Impaired healing [Unknown]
  - Tooth disorder [Unknown]
  - Rheumatoid arthritis [Not Recovered/Not Resolved]
  - Anaemia [Unknown]
  - Bladder dysfunction [Unknown]
  - Rectal haemorrhage [Unknown]
  - Intermittent claudication [Unknown]
  - Diabetic microangiopathy [Unknown]
  - Stress urinary incontinence [Unknown]
  - Cystocele [Unknown]
  - Rheumatoid arthritis [Unknown]
  - Nephropathy [Unknown]
  - Cataract [Unknown]
  - Hypercholesterolaemia [Unknown]
  - Hypoalbuminaemia [Unknown]
  - Polyneuropathy [Unknown]
  - Foot deformity [Not Recovered/Not Resolved]
  - Cataract [Unknown]
  - Osteoarthritis [Unknown]
  - Vascular calcification [Unknown]
  - Animal bite [Unknown]
  - Weight decreased [Unknown]
  - Foot fracture [Unknown]
  - Nocturia [Unknown]
  - Hypoaesthesia [Unknown]
  - Carpal tunnel syndrome [Unknown]
  - Foot deformity [Unknown]
  - Poor quality sleep [Unknown]
  - Hypoaesthesia [Unknown]
  - Bunion [Unknown]
  - Post procedural infection [Unknown]
  - Arthropathy [Unknown]
  - Toxicity to various agents [Unknown]
  - Fatigue [Not Recovered/Not Resolved]
  - Large intestine polyp [Unknown]
  - Oesophageal irritation [Unknown]
  - Asthenia [Unknown]
  - Upper respiratory tract infection [Unknown]
  - Breast calcifications [Unknown]
  - Acquired claw toe [Unknown]
  - Heart rate irregular [Unknown]
  - Bone disorder [Unknown]
  - Anxiety [Unknown]
  - Stomatitis [Unknown]
  - Arthralgia [Unknown]
  - Pain in extremity [Unknown]
  - Mouth ulceration [Unknown]
  - Dyspepsia [Unknown]
  - Oedema peripheral [Recovered/Resolved]
  - Diarrhoea [Not Recovered/Not Resolved]
  - Oedema peripheral [Unknown]
  - Pain in extremity [Unknown]
  - Scan myocardial perfusion abnormal [Unknown]
  - Pneumothorax [Unknown]
  - Pleural effusion [Unknown]
  - Chronic obstructive pulmonary disease [Unknown]
  - Coronary artery disease [Unknown]
  - Skeletal injury [None]
  - Blood cholesterol increased [None]
  - Balance disorder [None]
  - Foot fracture [None]
